FAERS Safety Report 15538047 (Version 1)
Quarter: 2018Q4

REPORT INFORMATION
  Report Type: Spontaneous
  Country: US (occurrence: US)
  Receive Date: 20181022
  Receipt Date: 20181022
  Transmission Date: 20190205
  Serious: Yes (Life-Threatening, Hospitalization, Other)
  Sender: FDA-Public Use
  Company Number: US-JUBILANT CADISTA PHARMACEUTICALS-2018JUB00425

PATIENT
  Age: 16 Year
  Sex: Female

DRUGS (3)
  1. LACOSAMIDE. [Suspect]
     Active Substance: LACOSAMIDE
     Dosage: 4.5 G (76 MG/KG)
     Route: 048
  2. CYCLOBENZAPRINE. [Suspect]
     Active Substance: CYCLOBENZAPRINE
     Dosage: 120 MG (2 MG/KG)
     Route: 048
  3. LEVETIRACETAM. [Suspect]
     Active Substance: LEVETIRACETAM
     Route: 048

REACTIONS (17)
  - Respiratory depression [Recovered/Resolved]
  - Ventricular fibrillation [Recovered/Resolved]
  - Bradycardia [Recovered/Resolved]
  - Circulatory collapse [Recovered/Resolved]
  - Drug interaction [Unknown]
  - QRS axis abnormal [Recovered/Resolved]
  - Pneumonia aspiration [Unknown]
  - Sinus tachycardia [Recovered/Resolved]
  - Electrocardiogram QRS complex prolonged [Recovered/Resolved]
  - Intentional overdose [Recovered/Resolved]
  - Depressed level of consciousness [Recovered/Resolved]
  - Cardiotoxicity [Recovered/Resolved]
  - Respiratory acidosis [Recovered/Resolved]
  - Intentional self-injury [Unknown]
  - Generalised tonic-clonic seizure [Recovered/Resolved]
  - Cardiac arrest [Recovered/Resolved]
  - Metabolic acidosis [Recovered/Resolved]
